FAERS Safety Report 7465330-8 (Version None)
Quarter: 2011Q2

REPORT INFORMATION
  Report Type: 
  Country: None (occurrence: None)
  Receive Date: 20110509
  Receipt Date: 20110505
  Transmission Date: 20111010
  Serious: Yes (Hospitalization)
  Sender: FDA-Public Use
  Company Number: US-ELI_LILLY_AND_COMPANY-US201103002155

PATIENT
  Sex: Female
  Weight: 94.785 kg

DRUGS (15)
  1. CALTRATE + D [Concomitant]
     Dosage: 600 MG, DAILY (1/D)
  2. CELEXA [Concomitant]
     Dosage: 40 MG, DAILY (1/D)
  3. ATENOLOL [Concomitant]
     Dosage: 25 MG, DAILY (1/D)
  4. METFORMIN [Concomitant]
     Indication: TYPE 2 DIABETES MELLITUS
     Dosage: 1000 MG, 2/D
  5. SYNTHROID [Concomitant]
     Indication: HYPOTHYROIDISM
     Dosage: 200 UG, DAILY (1/D)
     Route: 048
  6. ENALAPRIL [Concomitant]
     Dosage: 5 MG, UNK
  7. CORTEF [Concomitant]
     Dosage: 5 MG, EACH EVENING
  8. BYETTA [Concomitant]
     Dosage: 10 UG, DAILY (1/D)
     Route: 058
     Dates: start: 20100819
  9. VITAMIN B-12 [Concomitant]
     Indication: VITAMIN B12 DEFICIENCY
     Dosage: 1000 UG, DAILY (1/D)
  10. TRICOR [Concomitant]
     Indication: HYPERLIPIDAEMIA
     Dosage: 145 MG, DAILY (1/D)
  11. BYETTA [Concomitant]
     Indication: TYPE 2 DIABETES MELLITUS
     Dosage: 10 UG, DAILY (1/D)
     Route: 058
  12. CORTEF [Concomitant]
     Dosage: 10 MG, EACH MORNING
  13. LOVAZA [Concomitant]
     Indication: HYPERLIPIDAEMIA
     Dosage: 2 G, 2/D
  14. GENOTROPIN [Suspect]
     Indication: HYPOPITUITARISM
     Dosage: 0.4 MG, DAILY (1/D)
     Route: 058
     Dates: start: 20050615, end: 20100818
  15. CRESTOR [Concomitant]
     Indication: HYPERLIPIDAEMIA
     Dosage: 10 MG, DAILY (1/D)

REACTIONS (1)
  - PITUITARY TUMOUR RECURRENT [None]
